FAERS Safety Report 15292617 (Version 2)
Quarter: 2018Q3

REPORT INFORMATION
  Report Type: Spontaneous
  Country: US (occurrence: US)
  Receive Date: 20180819
  Receipt Date: 20180905
  Transmission Date: 20181010
  Serious: No
  Sender: FDA-Public Use
  Company Number: US-009507513-1808USA005425

PATIENT
  Age: 27 Year
  Sex: Female
  Weight: 70.75 kg

DRUGS (1)
  1. NEXPLANON [Suspect]
     Active Substance: ETONOGESTREL
     Dosage: 1 IMPLANT, EVERY 3 YEARS
     Route: 059
     Dates: start: 20180809

REACTIONS (3)
  - No adverse event [Unknown]
  - Complication of device insertion [Unknown]
  - Product quality issue [Unknown]

NARRATIVE: CASE EVENT DATE: 20180809
